FAERS Safety Report 22306645 (Version 1)
Quarter: 2023Q2

REPORT INFORMATION
  Report Type: Spontaneous
  Country: US (occurrence: US)
  Receive Date: 20230511
  Receipt Date: 20230511
  Transmission Date: 20230722
  Serious: No
  Sender: FDA-Public Use
  Company Number: US-ABBVIE-4740730

PATIENT
  Sex: Female

DRUGS (1)
  1. MAVYRET [Suspect]
     Active Substance: GLECAPREVIR\PIBRENTASVIR
     Indication: Product used for unknown indication
     Dosage: LAST ADMINISTRATION WAS 2023
     Route: 048
     Dates: start: 202302

REACTIONS (3)
  - Faeces discoloured [Unknown]
  - Erythema [Unknown]
  - Abdominal distension [Unknown]
